FAERS Safety Report 16822615 (Version 2)
Quarter: 2019Q4

REPORT INFORMATION
  Report Type: Spontaneous
  Country: US (occurrence: US)
  Receive Date: 20190918
  Receipt Date: 20191008
  Transmission Date: 20200122
  Serious: Yes (Other)
  Sender: FDA-Public Use
  Company Number: US-PFIZER INC-2019402593

PATIENT
  Age: 67 Year

DRUGS (2)
  1. GABAPENTIN. [Suspect]
     Active Substance: GABAPENTIN
     Dosage: UNK
  2. GABAPENTIN. [Suspect]
     Active Substance: GABAPENTIN
     Dosage: UNK (HIGHER DOSE)

REACTIONS (5)
  - Spinal cord injury [Unknown]
  - Drug ineffective [Unknown]
  - Pain [Unknown]
  - Nervousness [Unknown]
  - Weight increased [Unknown]
